FAERS Safety Report 9830116 (Version 1)
Quarter: 2014Q1

REPORT INFORMATION
  Report Type: Report from Study
  Country: JP (occurrence: JP)
  Receive Date: 20140120
  Receipt Date: 20140120
  Transmission Date: 20141002
  Serious: Yes (Hospitalization)
  Sender: FDA-Public Use
  Company Number: JP-MYLANLABS-2014S1000565

PATIENT
  Age: 62 Year
  Sex: Male

DRUGS (2)
  1. EPERISONE [Suspect]
     Indication: OVERDOSE
     Dosage: 5000MG
     Route: 065
  2. TRIAZOLAM [Suspect]
     Indication: OVERDOSE
     Dosage: 2.5MG
     Route: 065

REACTIONS (2)
  - Overdose [Recovered/Resolved]
  - Electrocardiogram QT prolonged [Recovered/Resolved]
